FAERS Safety Report 10170252 (Version 1)
Quarter: 2014Q2

REPORT INFORMATION
  Report Type: Spontaneous
  Country: AU (occurrence: AU)
  Receive Date: 20140513
  Receipt Date: 20140513
  Transmission Date: 20141212
  Serious: Yes (Death)
  Sender: FDA-Public Use
  Company Number: PHHY2014AU056438

PATIENT
  Sex: Male

DRUGS (1)
  1. ONBREZ [Suspect]
     Dosage: 2 WEEKS

REACTIONS (3)
  - Chronic obstructive pulmonary disease [Fatal]
  - Condition aggravated [Fatal]
  - Upper respiratory tract infection [Unknown]
